FAERS Safety Report 9496545 (Version 3)
Quarter: 2014Q1

REPORT INFORMATION
  Report Type: Spontaneous
  Country: US (occurrence: None)
  Receive Date: 20130829
  Receipt Date: 20140106
  Transmission Date: 20141002
  Serious: Yes (Death, Hospitalization, Other)
  Sender: FDA-Public Use
  Company Number: 150671

PATIENT
  Age: 67 Year
  Sex: Female
  Weight: 57 kg

DRUGS (1)
  1. LEUCOVORIN CALCIUM [Suspect]
     Indication: COLORECTAL CANCER METASTATIC
     Dosage: 400MG/M2 IV
     Route: 042
     Dates: end: 20130711

REACTIONS (9)
  - Sepsis [None]
  - Pelvic pain [None]
  - Diarrhoea [None]
  - Pelvic abscess [None]
  - Fistula [None]
  - Systemic inflammatory response syndrome [None]
  - Post procedural complication [None]
  - Colorectal cancer metastatic [None]
  - Malignant neoplasm progression [None]
